FAERS Safety Report 7100126-8 (Version None)
Quarter: 2010Q4

REPORT INFORMATION
  Report Type: 
  Country: None (occurrence: None)
  Receive Date: 20101112
  Receipt Date: 20100316
  Transmission Date: 20110411
  Serious: No
  Sender: FDA-Public Use
  Company Number: A0850468A

PATIENT
  Age: 61 Year
  Sex: Female

DRUGS (11)
  1. COREG [Suspect]
     Dosage: 1TAB TWICE PER DAY
     Route: 048
     Dates: start: 19970101
  2. COREG [Suspect]
     Dosage: 1TAB TWICE PER DAY
     Route: 048
     Dates: start: 20090101, end: 20090101
  3. COREG CR [Suspect]
     Dosage: 1CAP TWICE PER DAY
     Route: 048
     Dates: start: 20090101, end: 20090101
  4. PLAVIX [Concomitant]
  5. FUROSEMIDE [Concomitant]
  6. LIPITOR [Concomitant]
  7. ESTRADIOL [Concomitant]
  8. POTASSIUM CHLORIDE [Concomitant]
  9. PRILOSEC [Concomitant]
  10. ASPIRIN [Concomitant]
  11. VITAMINS [Concomitant]

REACTIONS (2)
  - DRUG INEFFECTIVE [None]
  - PAIN [None]
